FAERS Safety Report 23379434 (Version 2)
Quarter: 2024Q1

REPORT INFORMATION
  Report Type: Report from Study
  Country: NL (occurrence: NL)
  Receive Date: 20240108
  Receipt Date: 20240111
  Transmission Date: 20240409
  Serious: Yes (Hospitalization, Other)
  Sender: FDA-Public Use
  Company Number: NL-VER-202400002

PATIENT
  Sex: Male

DRUGS (3)
  1. TRIPTORELIN PAMOATE [Suspect]
     Active Substance: TRIPTORELIN PAMOATE
     Indication: Prostate cancer
     Dosage: PAMORELIN DEPOT INJPDR 22.5MG SOLV 2ML (6 M)?BATCH NUMBER: A54122
     Route: 030
     Dates: start: 20230526, end: 20230526
  2. TRIPTORELIN PAMOATE [Suspect]
     Active Substance: TRIPTORELIN PAMOATE
     Indication: Prostate cancer
     Dosage: PAMORELIN DEPOT INJPDR 22.5MG SOLV 2ML (6 M)?BATCH NUMBER: A56523
     Route: 030
     Dates: start: 20230825, end: 20230825
  3. TRIPTORELIN PAMOATE [Suspect]
     Active Substance: TRIPTORELIN PAMOATE
     Indication: Prostate cancer
     Dosage: PAMORELIN DEPOT INJPDR 22.5MG SOLV 2ML (6 M)?BATCH NUMBER: A64578
     Route: 030
     Dates: start: 20231122, end: 20231122

REACTIONS (2)
  - Pain [Unknown]
  - Terminal state [Unknown]
